FAERS Safety Report 10492576 (Version 1)
Quarter: 2014Q4

REPORT INFORMATION
  Report Type: Spontaneous
  Country: US (occurrence: US)
  Receive Date: 20141002
  Receipt Date: 20141002
  Transmission Date: 20150528
  Serious: No
  Sender: FDA-Public Use
  Company Number: US-GLAXOSMITHKLINE-A1072822A

PATIENT
  Age: 70 Year
  Sex: Female

DRUGS (9)
  1. CLEAR LUNGS [Concomitant]
  2. UNSPECIFIED INHALER [Concomitant]
     Active Substance: UNSPECIFIED INGREDIENT
  3. NEBULIZER [Concomitant]
     Active Substance: UNSPECIFIED INGREDIENT
     Dates: start: 2013, end: 2013
  4. FLONASE [Concomitant]
     Active Substance: FLUTICASONE PROPIONATE
  5. VALTREX [Suspect]
     Active Substance: VALACYCLOVIR HYDROCHLORIDE
     Indication: HERPES ZOSTER
     Dosage: 1TAB THREE TIMES PER DAY
  6. ALLERGY MEDICATION [Concomitant]
     Active Substance: DIPHENHYDRAMINE HYDROCHLORIDE
  7. ADVAIR HFA [Suspect]
     Active Substance: FLUTICASONE PROPIONATE\SALMETEROL XINAFOATE
     Indication: ASTHMA
     Dosage: 1PUFF TWICE PER DAY
     Route: 055
  8. LOSARTAN [Concomitant]
     Active Substance: LOSARTAN
  9. FLUOXETINE [Concomitant]
     Active Substance: FLUOXETINE\FLUOXETINE HYDROCHLORIDE

REACTIONS (6)
  - Rash erythematous [Unknown]
  - Acne [Unknown]
  - Madarosis [Unknown]
  - Memory impairment [Unknown]
  - Overdose [Unknown]
  - Herpes zoster [Unknown]

NARRATIVE: CASE EVENT DATE: 201311
